FAERS Safety Report 4674833-0 (Version None)
Quarter: 2005Q2

REPORT INFORMATION
  Report Type: 
  Country: None (occurrence: None)
  Receive Date: 20050526
  Receipt Date: 20050519
  Transmission Date: 20051028
  Serious: Yes (Death, Life-Threatening, Hospitalization)
  Sender: FDA-Public Use
  Company Number: CH-BRISTOL-MYERS SQUIBB COMPANY-12975546

PATIENT
  Age: 68 Year
  Sex: Male

DRUGS (13)
  1. ENDOXAN [Suspect]
     Indication: ACUTE LYMPHOCYTIC LEUKAEMIA
     Dates: start: 20050209, end: 20050307
  2. METHOTREXATE [Suspect]
     Indication: ACUTE LYMPHOCYTIC LEUKAEMIA
     Dates: start: 20050209, end: 20050307
  3. FUNGIZONE [Suspect]
     Dates: start: 20050201, end: 20050201
  4. ASPARAGINASE [Suspect]
     Indication: ACUTE LYMPHOCYTIC LEUKAEMIA
     Dates: start: 20050209, end: 20050307
  5. ONCOVIN [Suspect]
     Indication: ACUTE LYMPHOCYTIC LEUKAEMIA
     Dates: start: 20050209, end: 20050307
  6. CERUBIDINE [Suspect]
     Indication: ACUTE LYMPHOCYTIC LEUKAEMIA
     Dates: start: 20050209, end: 20050307
  7. VFEND [Suspect]
     Dates: start: 20050220, end: 20050308
  8. VALTREX [Suspect]
     Indication: BRONCHOPULMONARY ASPERGILLOSIS
     Dates: start: 20050220, end: 20050308
  9. TAZOBAC [Suspect]
     Dates: start: 20050212, end: 20050304
  10. TORSEMIDE [Concomitant]
     Dates: start: 20050201, end: 20050301
  11. NAVOBAN [Concomitant]
     Dates: start: 20050201, end: 20050301
  12. BACTRIM [Concomitant]
     Dates: start: 20050212, end: 20050220
  13. PREDNISONE TAB [Concomitant]
     Dates: start: 20050209

REACTIONS (9)
  - BRONCHOPULMONARY ASPERGILLOSIS [None]
  - CARDIAC DISORDER [None]
  - COMA HEPATIC [None]
  - GASTROINTESTINAL HAEMORRHAGE [None]
  - HEPATIC ENCEPHALOPATHY [None]
  - HEPATIC STEATOSIS [None]
  - LIVER DISORDER [None]
  - MULTI-ORGAN FAILURE [None]
  - RENAL FAILURE ACUTE [None]
